FAERS Safety Report 8458361-2 (Version None)
Quarter: 2012Q2

REPORT INFORMATION
  Report Type: 
  Country: None (occurrence: None)
  Receive Date: 20120622
  Receipt Date: 20120530
  Transmission Date: 20120825
  Serious: Yes (Other)
  Sender: FDA-Public Use
  Company Number: CL-US-EMD SERONO, INC.-7128482

PATIENT
  Sex: Male
  Weight: 38 kg

DRUGS (1)
  1. SAIZEN [Suspect]
     Indication: GROWTH HORMONE DEFICIENCY
     Route: 058
     Dates: start: 20120309

REACTIONS (2)
  - BENIGN LUNG NEOPLASM [None]
  - LUNG NEOPLASM [None]
